FAERS Safety Report 12451124 (Version 1)
Quarter: 2016Q2

REPORT INFORMATION
  Report Type: Spontaneous
  Country: AU (occurrence: AU)
  Receive Date: 20160609
  Receipt Date: 20160609
  Transmission Date: 20160815
  Serious: Yes (Other)
  Sender: FDA-Public Use
  Company Number: AU-SUNOVION-2016DSP000329

PATIENT
  Sex: Male

DRUGS (3)
  1. LATUDA [Suspect]
     Active Substance: LURASIDONE HYDROCHLORIDE
     Dosage: 80 MG, QD
     Route: 048
  2. PRISTIQ EXTENDED-RELEASE [Concomitant]
     Active Substance: DESVENLAFAXINE SUCCINATE
     Dosage: 100 MG, QD
  3. EPILIM [Concomitant]
     Active Substance: VALPROATE SODIUM
     Dosage: 2500 MG, QD

REACTIONS (3)
  - Agitation [Recovered/Resolved]
  - Anger [Recovered/Resolved]
  - Akathisia [Recovered/Resolved]
